FAERS Safety Report 8818452 (Version 1)
Quarter: 2012Q4

REPORT INFORMATION
  Report Type: 
  Country: ES (occurrence: ES)
  Receive Date: 20121001
  Receipt Date: 20121001
  Transmission Date: 20130627
  Serious: Yes (Hospitalization)
  Sender: FDA-Public Use
  Company Number: ES-ELI_LILLY_AND_COMPANY-ES201209006015

PATIENT
  Sex: Female
  Weight: 85 kg

DRUGS (10)
  1. FORSTEO [Suspect]
     Indication: OSTEOPOROSIS
     Dosage: 20 ug, qd
     Route: 058
     Dates: start: 20120705
  2. EUTHYROX [Concomitant]
     Indication: HYPOTHYROIDISM
     Dosage: UNK, qd
  3. OMEPRAZOL [Concomitant]
     Indication: GASTRITIS PROPHYLAXIS
     Dosage: 20 mg, qd
     Route: 048
  4. LOBIVON [Concomitant]
     Indication: ARRHYTHMIA
     Dosage: 50 mg, qd
     Route: 048
  5. SUTRIL [Concomitant]
     Dosage: 10 mg, qd
     Route: 048
  6. DOXIUM [Concomitant]
     Indication: BLOOD DISORDER
     Dosage: 50 mg, qd
  7. MICARDIS [Concomitant]
     Dosage: 80 mg, qd
  8. SIMVASTATIN [Concomitant]
     Indication: HYPERCHOLESTEROLAEMIA
     Dosage: 20 mg, qd
  9. PAXITAL [Concomitant]
     Indication: PAIN
     Dosage: UNK, prn
  10. MASTICAL D [Concomitant]
     Indication: OSTEOPOROSIS
     Dosage: UNK, qd
     Route: 048

REACTIONS (1)
  - Fracture malunion [Not Recovered/Not Resolved]
